FAERS Safety Report 8403117-X (Version None)
Quarter: 2012Q2

REPORT INFORMATION
  Report Type: 
  Country: None (occurrence: None)
  Receive Date: 20120601
  Receipt Date: 20120522
  Transmission Date: 20120825
  Serious: Yes (Hospitalization)
  Sender: FDA-Public Use
  Company Number: CZ-AMGEN-CZESP2012032865

PATIENT
  Age: 67 Year
  Sex: Female

DRUGS (14)
  1. EUTHYROX [Concomitant]
     Dosage: UNK
  2. PROTELOS [Concomitant]
     Dosage: UNK
  3. MOLSIHEXAL [Concomitant]
     Dosage: UNK
  4. OMEPRAZOLE [Concomitant]
     Dosage: UNK
  5. CALCIUM [Concomitant]
     Dosage: UNK
  6. ENBREL [Suspect]
     Indication: PSORIATIC ARTHROPATHY
     Dosage: 50 MG, WEEKLY
     Route: 058
     Dates: start: 20100101
  7. RAMIPRIL [Concomitant]
     Dosage: UNK
  8. METHOTREXATE [Concomitant]
     Dosage: UNK
  9. EGILIPID [Concomitant]
     Dosage: UNK
  10. CLONAZEPAM [Concomitant]
     Dosage: UNK
  11. KEPPRA [Concomitant]
     Dosage: UNK
  12. ACIDUM FOLICUM [Concomitant]
     Dosage: UNK
  13. ASPIRIN [Concomitant]
     Dosage: UNK
  14. VIGANTOL                           /00318501/ [Concomitant]
     Dosage: UNK

REACTIONS (2)
  - MUSCULOSKELETAL PAIN [None]
  - RADICULAR SYNDROME [None]
